FAERS Safety Report 6081093-5 (Version None)
Quarter: 2009Q1

REPORT INFORMATION
  Report Type: 
  Country: None (occurrence: None)
  Receive Date: 20090114
  Receipt Date: 20080306
  Transmission Date: 20090719
  Serious: Yes (Hospitalization)
  Sender: FDA-Public Use
  Company Number: 272937

PATIENT
  Age: 64 Year
  Sex: Male
  Weight: 104.3 kg

DRUGS (2)
  1. NOVOLIN 70/30 [Suspect]
     Indication: BLOOD INSULIN
     Dosage: 25 IU, QD, SUBCUTANEOUS
     Route: 058
     Dates: start: 19860101
  2. NOVOLIN N [Suspect]
     Indication: BLOOD INSULIN
     Dosage: 30 IU, QD, SUBCUTANEOUS
     Route: 058
     Dates: end: 20080201

REACTIONS (1)
  - BLOOD GLUCOSE INCREASED [None]
